FAERS Safety Report 18698190 (Version 1)
Quarter: 2021Q1

REPORT INFORMATION
  Report Type: Spontaneous
  Country: US (occurrence: US)
  Receive Date: 20210105
  Receipt Date: 20210105
  Transmission Date: 20210419
  Serious: No
  Sender: FDA-Public Use
  Company Number: US-SA-2021SA001918

PATIENT

DRUGS (1)
  1. DUPIXENT [Suspect]
     Active Substance: DUPILUMAB
     Indication: DERMATITIS ATOPIC
     Dosage: UNK

REACTIONS (5)
  - Headache [Unknown]
  - Lethargy [Unknown]
  - Fatigue [Unknown]
  - Treatment failure [Unknown]
  - Dizziness [Unknown]

NARRATIVE: CASE EVENT DATE: 20200511
